FAERS Safety Report 11190401 (Version 3)
Quarter: 2017Q1

REPORT INFORMATION
  Report Type: Report from Study
  Country: BR (occurrence: BR)
  Receive Date: 20150615
  Receipt Date: 20170104
  Transmission Date: 20170428
  Serious: Yes (Other)
  Sender: FDA-Public Use
  Company Number: PHHY2015BR050726

PATIENT
  Sex: Female
  Weight: 47.8 kg

DRUGS (4)
  1. LOSARTAN. [Concomitant]
     Active Substance: LOSARTAN
     Indication: HYPERTENSION
     Dosage: 1 DF, QD
     Route: 048
     Dates: start: 2005
  2. SANDOSTATIN LAR DEPOT [Suspect]
     Active Substance: OCTREOTIDE ACETATE
     Indication: NEUROENDOCRINE TUMOUR
     Dosage: 30 MG (1 INJECTION), QMO
     Route: 030
     Dates: start: 201405
  3. SANDOSTATIN LAR DEPOT [Suspect]
     Active Substance: OCTREOTIDE ACETATE
     Dosage: 20 MG, QMO (ONCE A MONTH)
     Route: 030
     Dates: start: 201408
  4. SANDOSTATIN LAR DEPOT [Suspect]
     Active Substance: OCTREOTIDE ACETATE
     Dosage: 20 MG, QMO  (MONTHLY)
     Route: 030
     Dates: start: 201406

REACTIONS (29)
  - Psychiatric symptom [Recovered/Resolved]
  - Diarrhoea [Recovered/Resolved]
  - Application site pain [Recovered/Resolved]
  - Intestinal cyst [Recovered/Resolved]
  - Asthenia [Unknown]
  - Diarrhoea [Unknown]
  - Fatigue [Recovered/Resolved]
  - Application site pain [Unknown]
  - Biliary cyst [Recovered/Resolved]
  - Malaise [Recovered/Resolved]
  - Malaise [Unknown]
  - Haemorrhoids [Unknown]
  - Vitamin B12 deficiency [Unknown]
  - Product quality issue [Unknown]
  - Abdominal pain [Recovered/Resolved]
  - Vitamin D deficiency [Unknown]
  - Flatulence [Recovered/Resolved]
  - Endometriosis [Recovered/Resolved]
  - Pain [Recovered/Resolved]
  - Renal impairment [Recovered/Resolved]
  - Somnolence [Unknown]
  - Dysbacteriosis [Unknown]
  - Asthenia [Recovered/Resolved]
  - Influenza [Recovered/Resolved]
  - Ovarian cyst [Recovered/Resolved]
  - Intestinal obstruction [Recovering/Resolving]
  - Cholelithiasis [Unknown]
  - Ureteral disorder [Recovered/Resolved]
  - Procedural complication [Unknown]

NARRATIVE: CASE EVENT DATE: 2014
